FAERS Safety Report 5806720-6 (Version None)
Quarter: 2008Q3

REPORT INFORMATION
  Report Type: 
  Country: None (occurrence: None)
  Receive Date: 20080709
  Receipt Date: 20080709
  Transmission Date: 20090109
  Serious: No
  Sender: FDA-Public Use
  Company Number: None

PATIENT
  Sex: Male

DRUGS (1)
  1. TARCEVA [Suspect]
     Indication: NEOPLASM MALIGNANT
     Dosage: ONE TABLET DAILY PO
     Route: 048

REACTIONS (3)
  - ACNE [None]
  - RASH ERYTHEMATOUS [None]
  - RASH PRURITIC [None]
